FAERS Safety Report 16629311 (Version 1)
Quarter: 2019Q3

REPORT INFORMATION
  Report Type: Spontaneous
  Country: ES (occurrence: ES)
  Receive Date: 20190725
  Receipt Date: 20190725
  Transmission Date: 20191004
  Serious: Yes (Life-Threatening)
  Sender: FDA-Public Use
  Company Number: ES-AMGEN-ESPSP2019117953

PATIENT
  Age: 55 Year
  Sex: Female

DRUGS (9)
  1. ENBREL [Suspect]
     Active Substance: ETANERCEPT
     Indication: RHEUMATOID ARTHRITIS
     Dosage: 50 MG, WEEKLY
     Route: 058
     Dates: start: 20130717, end: 20190329
  2. OMEPRAZOLE. [Concomitant]
     Active Substance: OMEPRAZOLE
     Dosage: 20 MG, DAILY
     Route: 048
  3. RANITIDINA VIR [Concomitant]
     Dosage: 150 MG, DAILY
     Route: 065
  4. INACID [INDOMETACIN] [Concomitant]
     Dosage: 25 MILLIGRAM, TID
     Route: 048
  5. METOCLOPRAMIDA ACCORD [Concomitant]
     Dosage: 10 MILLIGRAM, TID
     Route: 048
  6. METOTREXATO [METHOTREXATE SODIUM] [Suspect]
     Active Substance: METHOTREXATE SODIUM
     Indication: PRODUCT USED FOR UNKNOWN INDICATION
     Dosage: 12.5 MG, WEEKLY
     Route: 048
     Dates: start: 2001, end: 201903
  7. ZAMENE [Concomitant]
     Active Substance: DEFLAZACORT
     Dosage: 6 MILLIGRAM, QD
     Route: 048
  8. ALOPURINOL NORMON [Concomitant]
     Dosage: 300 MG, DAILY
     Route: 048
  9. LEDERFOLIN [Concomitant]
     Active Substance: LEUCOVORIN CALCIUM
     Dosage: 15 MG, WEEKLY
     Route: 048

REACTIONS (1)
  - B-cell lymphoma [Recovering/Resolving]

NARRATIVE: CASE EVENT DATE: 20190513
